FAERS Safety Report 6706064-4 (Version None)
Quarter: 2010Q2

REPORT INFORMATION
  Report Type: 
  Country: None (occurrence: None)
  Receive Date: 20100423
  Receipt Date: 20091230
  Transmission Date: 20101027
  Serious: No
  Sender: FDA-Public Use
  Company Number: ALL1-2009-04194

PATIENT
  Age: 54 Year
  Sex: Female
  Weight: 68 kg

DRUGS (4)
  1. VYVANSE [Suspect]
     Indication: ATTENTION DEFICIT/HYPERACTIVITY DISORDER
     Dosage: 20 MG, 1X/DAY:QD, ORAL ; 40 MG, TAKES (2) 20MG CAPSULES 1X/DAY:QD, ORAL ; 20 MG, 1X/DAY:QD, ORAL
     Route: 048
     Dates: start: 20091121, end: 20091204
  2. VYVANSE [Suspect]
     Indication: ATTENTION DEFICIT/HYPERACTIVITY DISORDER
     Dosage: 20 MG, 1X/DAY:QD, ORAL ; 40 MG, TAKES (2) 20MG CAPSULES 1X/DAY:QD, ORAL ; 20 MG, 1X/DAY:QD, ORAL
     Route: 048
     Dates: start: 20091205, end: 20091205
  3. VYVANSE [Suspect]
     Indication: ATTENTION DEFICIT/HYPERACTIVITY DISORDER
     Dosage: 20 MG, 1X/DAY:QD, ORAL ; 40 MG, TAKES (2) 20MG CAPSULES 1X/DAY:QD, ORAL ; 20 MG, 1X/DAY:QD, ORAL
     Route: 048
     Dates: start: 20091230
  4. SYNTHROID [Concomitant]

REACTIONS (6)
  - CHILLS [None]
  - DIZZINESS [None]
  - FEELING COLD [None]
  - HEART RATE IRREGULAR [None]
  - PALPITATIONS [None]
  - SENSORY DISTURBANCE [None]
